FAERS Safety Report 8607327-8 (Version None)
Quarter: 2012Q3

REPORT INFORMATION
  Report Type: 
  Country: None (occurrence: None)
  Receive Date: 20120821
  Receipt Date: 20120815
  Transmission Date: 20120928
  Serious: Yes (Hospitalization)
  Sender: FDA-Public Use
  Company Number: NL-TEVA-354412USA

PATIENT

DRUGS (3)
  1. TREANDA [Suspect]
     Route: 042
     Dates: start: 20120420
  2. RITUXIMAB [Suspect]
     Dates: start: 20120420
  3. LENALIDOMIDE [Suspect]
     Dates: start: 20120420

REACTIONS (3)
  - SKIN EXFOLIATION [None]
  - RASH [None]
  - DIARRHOEA [None]
